FAERS Safety Report 7124313-8 (Version None)
Quarter: 2010Q4

REPORT INFORMATION
  Report Type: 
  Country: None (occurrence: None)
  Receive Date: 20101126
  Receipt Date: 20101117
  Transmission Date: 20110411
  Serious: Yes (Hospitalization)
  Sender: FDA-Public Use
  Company Number: PHHY2010TW78616

PATIENT
  Age: 59 Year
  Sex: Male

DRUGS (1)
  1. SEBIVO [Suspect]
     Dosage: UNK
     Dates: start: 20100325

REACTIONS (2)
  - HEPATIC NEOPLASM MALIGNANT [None]
  - LIVER OPERATION [None]
